FAERS Safety Report 17854010 (Version 3)
Quarter: 2020Q3

REPORT INFORMATION
  Report Type: Spontaneous
  Country: BE (occurrence: BE)
  Receive Date: 20200603
  Receipt Date: 20200702
  Transmission Date: 20201103
  Serious: Yes (Hospitalization)
  Sender: FDA-Public Use
  Company Number: BE-GLAXOSMITHKLINE-BE2020089599

PATIENT
  Age: 3 Year
  Sex: Female

DRUGS (1)
  1. ZINNAT [Suspect]
     Active Substance: CEFUROXIME
     Indication: PRODUCT USED FOR UNKNOWN INDICATION
     Dosage: 300 MG, QD
     Route: 048

REACTIONS (5)
  - Accidental overdose [Unknown]
  - Feeling abnormal [Unknown]
  - Product administration error [Unknown]
  - Malaise [Unknown]
  - Product complaint [Unknown]

NARRATIVE: CASE EVENT DATE: 20200524
